FAERS Safety Report 16112061 (Version 1)
Quarter: 2019Q2

REPORT INFORMATION
  Report Type: Spontaneous
  Country: US (occurrence: US)
  Receive Date: 20190323
  Receipt Date: 20190323
  Transmission Date: 20190711
  Serious: Yes (Disabling)
  Sender: FDA-Public Use
  Company Number: None

PATIENT
  Age: 68 Year
  Sex: Female
  Weight: 78.75 kg

DRUGS (4)
  1. DESMOPRESSIN ACETATE .2MG TAB [Suspect]
     Active Substance: DESMOPRESSIN ACETATE
     Indication: URINARY INCONTINENCE
     Dosage: ?          QUANTITY:1 TABLET(S);?
     Route: 048
     Dates: start: 20180418, end: 20190130
  2. ACEBUTOLOL [Concomitant]
     Active Substance: ACEBUTOLOL
  3. TRAZODONE [Concomitant]
     Active Substance: TRAZODONE HYDROCHLORIDE
  4. AMLODOPINE [Concomitant]
     Active Substance: AMLODIPINE BESYLATE

REACTIONS (13)
  - Fatigue [None]
  - Confusional state [None]
  - Vertigo [None]
  - Balance disorder [None]
  - Personality change [None]
  - Depression [None]
  - Muscle fatigue [None]
  - Headache [None]
  - Coordination abnormal [None]
  - Affect lability [None]
  - Irritability [None]
  - Anger [None]
  - Asthenia [None]

NARRATIVE: CASE EVENT DATE: 20181001
